FAERS Safety Report 12834056 (Version 2)
Quarter: 2016Q4

REPORT INFORMATION
  Report Type: Spontaneous
  Country: US (occurrence: US)
  Receive Date: 20161010
  Receipt Date: 20161104
  Transmission Date: 20170207
  Serious: No
  Sender: FDA-Public Use
  Company Number: US-DISCUS DENTAL, LLC-1058166

PATIENT
  Sex: Male

DRUGS (1)
  1. FLUORIDEX DAILY DEFENSE FRESH FRUIT 5000PPM [Suspect]
     Active Substance: SODIUM FLUORIDE
     Route: 048
     Dates: start: 20160826

REACTIONS (2)
  - Dyspepsia [Recovered/Resolved]
  - Abdominal pain upper [Recovered/Resolved]

NARRATIVE: CASE EVENT DATE: 20160826
